FAERS Safety Report 4637258-X (Version None)
Quarter: 2005Q2

REPORT INFORMATION
  Report Type: 
  Country: None (occurrence: None)
  Receive Date: 20050418
  Receipt Date: 20050406
  Transmission Date: 20051028
  Serious: Yes (Hospitalization)
  Sender: FDA-Public Use
  Company Number: US-JNJFOC-20050401707

PATIENT
  Sex: Female

DRUGS (5)
  1. REMICADE [Suspect]
     Indication: RHEUMATOID ARTHRITIS
     Route: 042
  2. INH [Concomitant]
  3. PYRIDOXINE HCL [Concomitant]
  4. PREDNISONE [Concomitant]
  5. CLARITIN [Concomitant]
     Indication: PREMEDICATION

REACTIONS (1)
  - ATRIAL FIBRILLATION [None]
